FAERS Safety Report 26008739 (Version 1)
Quarter: 2025Q4

REPORT INFORMATION
  Report Type: Spontaneous
  Country: US (occurrence: US)
  Receive Date: 20251106
  Receipt Date: 20251106
  Transmission Date: 20260118
  Serious: Yes (Other)
  Sender: JOHNSON AND JOHNSON
  Company Number: US-JNJFOC-20251039834

PATIENT

DRUGS (1)
  1. TREMFYA [Suspect]
     Active Substance: GUSELKUMAB
     Indication: Colitis ulcerative
     Dosage: RECEIVED 2 INDUCTION DOSES
     Route: 058
     Dates: end: 2025

REACTIONS (2)
  - Infectious mononucleosis [Recovered/Resolved]
  - Splenomegaly [Recovered/Resolved]

NARRATIVE: CASE EVENT DATE: 20250101
